FAERS Safety Report 6067982-6 (Version None)
Quarter: 2009Q1

REPORT INFORMATION
  Report Type: 
  Country: None (occurrence: None)
  Receive Date: 20090206
  Receipt Date: 20090126
  Transmission Date: 20090719
  Serious: Yes (Hospitalization)
  Sender: FDA-Public Use
  Company Number: NL-JNJFOC-20090106796

PATIENT
  Sex: Male

DRUGS (1)
  1. REMICADE [Suspect]
     Indication: CROHN'S DISEASE
     Dosage: 3 INFUSIONS TOTAL, ON WEEK 0, 2, AND 6
     Route: 042

REACTIONS (7)
  - LUPUS-LIKE SYNDROME [None]
  - LYMPHADENITIS [None]
  - PETECHIAE [None]
  - PYREXIA [None]
  - STOMATITIS [None]
  - THROMBOCYTOPENIA [None]
  - VASCULITIS [None]
